FAERS Safety Report 7230219-6 (Version None)
Quarter: 2011Q1

REPORT INFORMATION
  Report Type: 
  Country: None (occurrence: None)
  Receive Date: 20110118
  Receipt Date: 20110114
  Transmission Date: 20110831
  Serious: Yes (Other)
  Sender: FDA-Public Use
  Company Number: US-PFIZER INC-2011010175

PATIENT
  Sex: Female
  Weight: 40.816 kg

DRUGS (4)
  1. SYNTHROID [Concomitant]
     Indication: HYPERTHYROIDISM
     Dosage: UNK
  2. HYDROCODONE [Concomitant]
     Dosage: UNK
  3. PREDNISOLONE [Concomitant]
     Indication: ARTHRITIS
     Dosage: 5 MG, UNK
  4. AROMASIN [Suspect]
     Indication: NEOPLASM MALIGNANT
     Dosage: 25 MG, DAILY
     Route: 048
     Dates: start: 20101201

REACTIONS (1)
  - OEDEMA [None]
